FAERS Safety Report 24058614 (Version 1)
Quarter: 2024Q3

REPORT INFORMATION
  Report Type: Spontaneous
  Country: DE (occurrence: DE)
  Receive Date: 20240708
  Receipt Date: 20240708
  Transmission Date: 20241017
  Serious: Yes (Other)
  Sender: AUROBINDO
  Company Number: DE-BRISTOL-MYERS SQUIBB COMPANY-2024-099694

PATIENT
  Age: 76 Year
  Sex: Female
  Weight: 72 kg

DRUGS (8)
  1. LEUCOVORIN [Suspect]
     Active Substance: LEUCOVORIN\LEUCOVORIN CALCIUM
     Indication: Gastric cancer
     Dosage: 686 MILLIGRAM, EVERY WEEK
     Route: 058
     Dates: start: 20240318
  2. OXALIPLATIN [Suspect]
     Active Substance: OXALIPLATIN
     Indication: Gastric cancer
     Dosage: 69 MILLIGRAM, EVERY WEEK
     Route: 042
     Dates: start: 20240318
  3. FLUOROURACIL [Suspect]
     Active Substance: FLUOROURACIL
     Indication: Gastric cancer
     Dosage: 2745 MILLIGRAM, EVERY WEEK
     Route: 042
     Dates: start: 20240318
  4. OPDIVO [Suspect]
     Active Substance: NIVOLUMAB
     Indication: Gastric cancer
     Dosage: 240 MILLIGRAM, UNK
     Route: 042
     Dates: start: 20240318
  5. DEXAMETHASONE [Concomitant]
     Active Substance: DEXAMETHASONE
     Indication: Prophylaxis
     Dosage: 8 MILLIGRAM, EVERY WEEK
     Route: 042
     Dates: start: 20240318
  6. ACTRAPHANE [Concomitant]
     Active Substance: INSULIN HUMAN
     Indication: Product used for unknown indication
     Dosage: 30 I.E
     Route: 058
     Dates: start: 20230825
  7. ONDANSETRON [Concomitant]
     Active Substance: ONDANSETRON
     Indication: Prophylaxis
     Dosage: 8 MILLIGRAM, EVERY WEEK
     Route: 042
     Dates: start: 20240318
  8. ONDANSETRON [Concomitant]
     Active Substance: ONDANSETRON
     Dosage: 8 MILLIGRAM, ONCE A DAY
     Route: 048
     Dates: start: 20240318

REACTIONS (3)
  - Polyneuropathy [Recovered/Resolved]
  - Hyperglycaemia [Recovered/Resolved]
  - Muscle spasms [Recovered/Resolved]

NARRATIVE: CASE EVENT DATE: 20240325
